FAERS Safety Report 7114246-5 (Version None)
Quarter: 2010Q4

REPORT INFORMATION
  Report Type: 
  Country: None (occurrence: None)
  Receive Date: 20101119
  Receipt Date: 20100427
  Transmission Date: 20110411
  Serious: Yes (Death, Other)
  Sender: FDA-Public Use
  Company Number: US-PURDUE-USA-2009-0040558

PATIENT
  Age: 51 Year
  Sex: Male

DRUGS (4)
  1. OXYCODONE HCL [Suspect]
     Indication: DRUG ABUSE
  2. MARIJUANA [Suspect]
     Indication: DRUG ABUSE
  3. COCAINE [Suspect]
     Indication: DRUG ABUSE
  4. OXYMORPHONE [Suspect]
     Indication: DRUG ABUSE

REACTIONS (11)
  - ABDOMINAL INJURY [None]
  - ACCIDENTAL DEATH [None]
  - ACCIDENTAL OVERDOSE [None]
  - CHEST INJURY [None]
  - DRUG SCREEN POSITIVE [None]
  - DRUG TOXICITY [None]
  - HEAD INJURY [None]
  - INJURY [None]
  - LIMB INJURY [None]
  - ROAD TRAFFIC ACCIDENT [None]
  - SUBSTANCE ABUSE [None]
